FAERS Safety Report 5132998-0 (Version None)
Quarter: 2006Q4

REPORT INFORMATION
  Report Type: 
  Country: None (occurrence: None)
  Receive Date: 20061018
  Receipt Date: 20061011
  Transmission Date: 20070319
  Serious: Yes (Death, Hospitalization)
  Sender: FDA-Public Use
  Company Number: 111726ISR

PATIENT
  Age: 91 Year
  Sex: Female

DRUGS (4)
  1. BUMETANIDE [Suspect]
     Indication: HYPERTENSION
  2. DICLOFENAC SODIUM 50 MG ENTERIC COATED TABLETS (DICLOFENAC) [Suspect]
     Indication: OSTEOARTHRITIS
     Dosage: TOPICAL
     Route: 061
  3. SPIRONOLACTONE [Suspect]
     Indication: HYPERTENSION
  4. DIGOXIN [Suspect]
     Indication: ATRIAL FIBRILLATION
     Dosage: ORAL
     Route: 048

REACTIONS (3)
  - FALL [None]
  - RENAL FAILURE [None]
  - THERAPEUTIC AGENT TOXICITY [None]
